FAERS Safety Report 5328415-8 (Version None)
Quarter: 2007Q2

REPORT INFORMATION
  Report Type: 
  Country: None (occurrence: None)
  Receive Date: 20070515
  Receipt Date: 20070515
  Transmission Date: 20071010
  Serious: Yes (Life-Threatening, Hospitalization)
  Sender: FDA-Public Use
  Company Number: None

PATIENT
  Age: 61 Year
  Sex: Male
  Weight: 102.0593 kg

DRUGS (1)
  1. PROCRIT [Suspect]
     Indication: RED BLOOD CELL COUNT DECREASED
     Dates: start: 20060901, end: 20070201

REACTIONS (2)
  - GASTROINTESTINAL NECROSIS [None]
  - PORTAL VEIN THROMBOSIS [None]
